FAERS Safety Report 6073775-6 (Version None)
Quarter: 2009Q1

REPORT INFORMATION
  Report Type: 
  Country: None (occurrence: None)
  Receive Date: 20090211
  Receipt Date: 20090204
  Transmission Date: 20090719
  Serious: Yes (Hospitalization)
  Sender: FDA-Public Use
  Company Number: GB-ABBOTT-09P-167-0501655-00

PATIENT
  Age: 58 Year
  Sex: Female

DRUGS (12)
  1. DEPAKOTE [Suspect]
     Indication: AFFECTIVE DISORDER
     Route: 048
     Dates: start: 20080101
  2. SEROQUEL [Suspect]
     Indication: ANXIETY
     Route: 048
     Dates: start: 20080101
  3. SEROQUEL [Suspect]
     Indication: DEPRESSION
     Dosage: 500 MG AT BEDTIME
     Route: 048
  4. SEROQUEL [Suspect]
     Dosage: 150MG IN MORNING AND 300MG AT NIGHT
     Route: 048
     Dates: end: 20081031
  5. SEROQUEL [Suspect]
     Dosage: 100MG IN MORNING AND 250MG AT NIGHT
     Route: 048
     Dates: start: 20081031
  6. SEROQUEL [Suspect]
     Dosage: 50MG IN MORNING AND 250MG AT NIGHT
     Route: 048
  7. CLOMIPRAMINE HCL [Suspect]
     Indication: DRUG USE FOR UNKNOWN INDICATION
     Dosage: 120 MG AT BEDTIME
     Route: 048
     Dates: start: 20080101
  8. SIMVASTATIN [Suspect]
     Indication: DRUG USE FOR UNKNOWN INDICATION
  9. ZOPICLONE [Suspect]
     Indication: DRUG USE FOR UNKNOWN INDICATION
  10. DIAZEPAM [Concomitant]
     Indication: DRUG USE FOR UNKNOWN INDICATION
     Dates: start: 20071231
  11. HALOPERIDOL [Concomitant]
     Indication: DRUG USE FOR UNKNOWN INDICATION
     Dates: start: 20080325, end: 20080401
  12. RISPERIDONE [Concomitant]
     Indication: DRUG USE FOR UNKNOWN INDICATION
     Dates: end: 20080325

REACTIONS (8)
  - ANXIETY [None]
  - DEPRESSED MOOD [None]
  - EXTRASYSTOLES [None]
  - NERVOUS SYSTEM DISORDER [None]
  - NIGHTMARE [None]
  - ORTHOSTATIC HYPOTENSION [None]
  - PALPITATIONS [None]
  - SOMNOLENCE [None]
